FAERS Safety Report 15080270 (Version 3)
Quarter: 2021Q1

REPORT INFORMATION
  Report Type: Report from Study
  Country: BR (occurrence: BR)
  Receive Date: 20180628
  Receipt Date: 20210316
  Transmission Date: 20210419
  Serious: Yes (Hospitalization)
  Sender: FDA-Public Use
  Company Number: BR-BIOGEN-2017BI00386403

PATIENT
  Sex: Female

DRUGS (2)
  1. AVONEX PEN [Suspect]
     Active Substance: INTERFERON BETA-1A
     Indication: MULTIPLE SCLEROSIS
     Route: 050
     Dates: start: 20131109
  2. AVONEX PEN [Suspect]
     Active Substance: INTERFERON BETA-1A
     Route: 030
     Dates: start: 201311, end: 2020

REACTIONS (10)
  - Fall [Recovered/Resolved]
  - Blindness [Unknown]
  - Tremor [Recovered/Resolved]
  - Aphonia [Not Recovered/Not Resolved]
  - Asthenia [Unknown]
  - Pyrexia [Recovered/Resolved]
  - Nail bed bleeding [Unknown]
  - Multiple sclerosis relapse [Not Recovered/Not Resolved]
  - Dysstasia [Not Recovered/Not Resolved]
  - Nail injury [Unknown]
